FAERS Safety Report 4390317-1 (Version None)
Quarter: 2004Q2

REPORT INFORMATION
  Report Type: 
  Country: None (occurrence: None)
  Receive Date: 20040630
  Receipt Date: 20040615
  Transmission Date: 20050107
  Serious: Yes (Other)
  Sender: FDA-Public Use
  Company Number: 2004-BP-04455AU

PATIENT
  Age: 54 Year
  Sex: Male

DRUGS (2)
  1. MICARDIS [Suspect]
     Indication: HYPERTENSION
     Dosage: 40 MG (40 MG, 1 DAILY) PO
     Route: 048
     Dates: start: 20030311
  2. ACEON [Suspect]
     Indication: HYPERTENSION
     Dosage: 2 MG (2 MG, 1 DAILY) PO
     Route: 048
     Dates: start: 20040417, end: 20040420

REACTIONS (4)
  - FATIGUE [None]
  - HOT FLUSH [None]
  - NAUSEA [None]
  - SLEEP DISORDER [None]
